FAERS Safety Report 7753578-4 (Version None)
Quarter: 2011Q3

REPORT INFORMATION
  Report Type: 
  Country: None (occurrence: None)
  Receive Date: 20110915
  Receipt Date: 20110908
  Transmission Date: 20111222
  Serious: Yes (Hospitalization)
  Sender: FDA-Public Use
  Company Number: US-GLAXOSMITHKLINE-A0884566A

PATIENT
  Age: 57 Year
  Sex: Male
  Weight: 85.5 kg

DRUGS (3)
  1. ASPIRIN [Concomitant]
  2. ENALAPRIL MALEATE [Concomitant]
  3. AVANDIA [Suspect]
     Indication: TYPE 2 DIABETES MELLITUS
     Dosage: 4MG TWICE PER DAY
     Route: 048
     Dates: start: 20020501, end: 20070523

REACTIONS (5)
  - PALPITATIONS [None]
  - HYPOAESTHESIA [None]
  - MYOCARDIAL INFARCTION [None]
  - ANGINA PECTORIS [None]
  - HYPERTENSION [None]
